FAERS Safety Report 8974945 (Version 1)
Quarter: 2012Q4

REPORT INFORMATION
  Report Type: 
  Country: GB (occurrence: GB)
  Receive Date: 20121219
  Receipt Date: 20121219
  Transmission Date: 20130627
  Serious: Yes (Hospitalization, Other)
  Sender: FDA-Public Use
  Company Number: GB-TEVA-375764ISR

PATIENT
  Age: 30 Year
  Sex: Male

DRUGS (3)
  1. OLANZAPINE [Suspect]
     Indication: SCHIZOPHRENIA, PARANOID TYPE
     Dosage: 15 Milligram Daily;
     Route: 048
     Dates: start: 20121018, end: 20121105
  2. HALOPERIDOL [Concomitant]
  3. LORAZEPAM [Concomitant]

REACTIONS (3)
  - Hypersensitivity [Recovered/Resolved]
  - Rash erythematous [Unknown]
  - Body temperature fluctuation [Unknown]
